FAERS Safety Report 9245301 (Version 5)
Quarter: 2015Q4

REPORT INFORMATION
  Report Type: Spontaneous
  Country: US (occurrence: US)
  Receive Date: 20130422
  Receipt Date: 20151105
  Transmission Date: 20160305
  Serious: Yes (Hospitalization, Other)
  Sender: FDA-Public Use
  Company Number: US-009507513-1304USA008265

PATIENT
  Sex: Male

DRUGS (1)
  1. PROPECIA [Suspect]
     Active Substance: FINASTERIDE
     Indication: ALOPECIA
     Dosage: 1 MG, QD
     Route: 048
     Dates: start: 2005, end: 2011

REACTIONS (21)
  - Transient ischaemic attack [Unknown]
  - Tachycardia [Unknown]
  - Erectile dysfunction [Unknown]
  - Syncope [Unknown]
  - Onychomycosis [Unknown]
  - Coronary angioplasty [Unknown]
  - Ejaculation disorder [Unknown]
  - Mitral valve incompetence [Unknown]
  - Urinary retention [Unknown]
  - Prostatic operation [Unknown]
  - Cognitive disorder [Unknown]
  - Sexual dysfunction [Unknown]
  - Left ventricular failure [Unknown]
  - Urinary tract obstruction [Unknown]
  - Gynaecomastia [Unknown]
  - Aortic valve incompetence [Unknown]
  - Haemangioma [Unknown]
  - Iron deficiency anaemia [Unknown]
  - Benign prostatic hyperplasia [Unknown]
  - Hypertension [Unknown]
  - Libido decreased [Unknown]

NARRATIVE: CASE EVENT DATE: 20060101
